FAERS Safety Report 10490917 (Version 1)
Quarter: 2014Q4

REPORT INFORMATION
  Report Type: Spontaneous
  Country: US (occurrence: US)
  Receive Date: 20141002
  Receipt Date: 20141002
  Transmission Date: 20150528
  Serious: No
  Sender: FDA-Public Use
  Company Number: US-GLAXOSMITHKLINE-A1044146A

PATIENT
  Sex: Female

DRUGS (10)
  1. XANAX [Concomitant]
     Active Substance: ALPRAZOLAM
  2. CLARITIN [Concomitant]
     Active Substance: LORATADINE
  3. VESICARE [Concomitant]
     Active Substance: SOLIFENACIN SUCCINATE
  4. FIORICET [Concomitant]
     Active Substance: ACETAMINOPHEN\BUTALBITAL\CAFFEINE
  5. BYSTOLIC [Concomitant]
     Active Substance: NEBIVOLOL HYDROCHLORIDE
  6. LOVASTATIN. [Concomitant]
     Active Substance: LOVASTATIN
  7. PROTONIX [Concomitant]
     Active Substance: PANTOPRAZOLE SODIUM
  8. LUNESTA [Concomitant]
     Active Substance: ESZOPICLONE
  9. ADVAIR HFA [Suspect]
     Active Substance: FLUTICASONE PROPIONATE\SALMETEROL XINAFOATE
     Indication: CHRONIC OBSTRUCTIVE PULMONARY DISEASE
     Dosage: 1PUFF TWICE PER DAY
     Route: 055
  10. ALBUTEROL INHALER [Concomitant]
     Active Substance: ALBUTEROL

REACTIONS (2)
  - Drug ineffective [Unknown]
  - Product quality issue [Unknown]
